FAERS Safety Report 6826042-4 (Version None)
Quarter: 2010Q3

REPORT INFORMATION
  Report Type: 
  Country: None (occurrence: None)
  Receive Date: 20100709
  Receipt Date: 20100707
  Transmission Date: 20110219
  Serious: Yes (Life-Threatening, Hospitalization)
  Sender: FDA-Public Use
  Company Number: JP-TYCO HEALTHCARE/MALLINCKRODT-T201001576

PATIENT
  Age: 22 Year
  Sex: Male

DRUGS (1)
  1. OPTIRAY 350 [Suspect]
     Indication: COMPUTERISED TOMOGRAM
     Dosage: 100 ML, SINGLE
     Route: 042
     Dates: start: 20100707, end: 20100707

REACTIONS (1)
  - SHOCK [None]
